FAERS Safety Report 12568265 (Version 1)
Quarter: 2016Q3

REPORT INFORMATION
  Report Type: Spontaneous
  Country: JP (occurrence: JP)
  Receive Date: 20160718
  Receipt Date: 20160718
  Transmission Date: 20161109
  Serious: Yes (Other)
  Sender: FDA-Public Use
  Company Number: JP-ASTRAZENECA-2016SE77571

PATIENT
  Age: 50 Year
  Sex: Male

DRUGS (2)
  1. TEN OTHER DRUGS [Concomitant]
  2. PULMICORT TURBUHALER [Suspect]
     Active Substance: BUDESONIDE
     Indication: ASTHMA
     Dosage: 100 MICROGRAMS, 112 DOSES
     Route: 055
     Dates: start: 20160627, end: 20160705

REACTIONS (1)
  - Drug eruption [Recovering/Resolving]

NARRATIVE: CASE EVENT DATE: 20160630
